FAERS Safety Report 9198034 (Version 2)
Quarter: 2013Q2

REPORT INFORMATION
  Report Type: Spontaneous
  Country: JP (occurrence: JP)
  Receive Date: 20130328
  Receipt Date: 20130409
  Transmission Date: 20140414
  Serious: Yes (Other)
  Sender: FDA-Public Use
  Company Number: JP-B.I. PHARMACEUTICALS,INC./RIDGEFIELD-2013-BI-08147GD

PATIENT
  Age: 64 Year
  Sex: Male

DRUGS (2)
  1. PRADAXA [Suspect]
     Dosage: 220 MG
     Route: 048
  2. ASPIRIN [Suspect]
     Dosage: 100 MG

REACTIONS (5)
  - Cerebral artery occlusion [Recovered/Resolved]
  - Aphasia [Unknown]
  - Hemianopia homonymous [Unknown]
  - Hemiparesis [Unknown]
  - Drug effect incomplete [Unknown]
